FAERS Safety Report 4588063-4 (Version None)
Quarter: 2005Q1

REPORT INFORMATION
  Report Type: 
  Country: None (occurrence: None)
  Receive Date: 20050216
  Receipt Date: 20050203
  Transmission Date: 20050727
  Serious: Yes (Hospitalization, Other)
  Sender: FDA-Public Use
  Company Number: JP_041004909

PATIENT
  Age: 24 Year
  Sex: Male
  Weight: 74 kg

DRUGS (5)
  1. ZYPREXA [Suspect]
     Indication: SCHIZOPHRENIA
     Dosage: 5 MG DAY
     Dates: start: 20040508, end: 20040924
  2. LODOPIN (ZOTEPINE) [Concomitant]
  3. DIAZEPAM [Concomitant]
  4. HALCION [Concomitant]
  5. DEPAS (ETIZOLAM) [Concomitant]

REACTIONS (1)
  - NEUROLEPTIC MALIGNANT SYNDROME [None]
